FAERS Safety Report 15994343 (Version 1)
Quarter: 2019Q1

REPORT INFORMATION
  Report Type: Spontaneous
  Country: US (occurrence: US)
  Receive Date: 20190222
  Receipt Date: 20190222
  Transmission Date: 20190418
  Serious: No
  Sender: FDA-Public Use
  Company Number: US-TEVA-2019-US-1006530

PATIENT
  Age: 60 Year
  Sex: Female

DRUGS (1)
  1. DULOXETINE DELAYED-RELEASE CAPSULES TEVA [Suspect]
     Active Substance: DULOXETINE
     Route: 065

REACTIONS (1)
  - Therapy cessation [Unknown]
